FAERS Safety Report 7628638-9 (Version None)
Quarter: 2011Q3

REPORT INFORMATION
  Report Type: 
  Country: None (occurrence: None)
  Receive Date: 20110721
  Receipt Date: 20110721
  Transmission Date: 20111222
  Serious: Yes (Other)
  Sender: FDA-Public Use
  Company Number: None

PATIENT
  Age: 61 Year
  Sex: Male
  Weight: 83.0083 kg

DRUGS (1)
  1. SIMVASTATIN [Suspect]
     Indication: BLOOD CHOLESTEROL INCREASED
     Dosage: 20 MG ONE A DAY ORAL
     Route: 048
     Dates: start: 20110601, end: 20110620

REACTIONS (4)
  - HYPOAESTHESIA [None]
  - PAIN [None]
  - GAIT DISTURBANCE [None]
  - MYALGIA [None]
